FAERS Safety Report 18526630 (Version 1)
Quarter: 2020Q4

REPORT INFORMATION
  Report Type: Spontaneous
  Country: US (occurrence: US)
  Receive Date: 20201120
  Receipt Date: 20201120
  Transmission Date: 20210114
  Serious: Yes (Hospitalization)
  Sender: FDA-Public Use
  Company Number: NVSC2020US303620

PATIENT
  Sex: Female
  Weight: 92.53 kg

DRUGS (2)
  1. LETROZOLE. [Suspect]
     Active Substance: LETROZOLE
     Indication: BREAST CANCER METASTATIC
     Dosage: UNK, QD (ONCE AT NIGHT)
     Route: 048
  2. IBRANCE [Suspect]
     Active Substance: PALBOCICLIB
     Indication: BREAST CANCER METASTATIC
     Dosage: 125 MG, QD (21 DAYS ON, 7 DAYS OFF)
     Route: 048
     Dates: start: 202006, end: 20201022

REACTIONS (4)
  - Tremor [Unknown]
  - Bone lesion [Unknown]
  - Central nervous system lesion [Unknown]
  - Gait disturbance [Unknown]
